FAERS Safety Report 6943990-5 (Version None)
Quarter: 2010Q3

REPORT INFORMATION
  Report Type: 
  Country: None (occurrence: None)
  Receive Date: 20100827
  Receipt Date: 20100511
  Transmission Date: 20110219
  Serious: Yes (Hospitalization)
  Sender: FDA-Public Use
  Company Number: TW-RANBAXY-2010RR-33739

PATIENT
  Age: 26 Year
  Sex: Female

DRUGS (8)
  1. LORAZEPAM [Suspect]
     Dosage: 1.5 MG/DAY
     Route: 065
  2. LORAZEPAM [Suspect]
     Dosage: UNK
     Route: 030
  3. AMISULPRIDE [Suspect]
     Indication: SCHIZOPHRENIA
     Dosage: 200-400MG/DAY
     Route: 065
     Dates: start: 20050101
  4. QUETIAPINE [Suspect]
     Dosage: {=200MG/DAY
     Route: 065
  5. ARIPIPRAZOLE [Suspect]
     Dosage: {=10MG/DAY
     Route: 065
  6. CLOZAPINE [Suspect]
     Dosage: {=50MG/DAY
     Route: 065
  7. BIPERIDEN HYDROCHLORIDE TAB [Suspect]
     Dosage: 1.5 MG/DAY
     Route: 065
  8. BIPERIDEN HYDROCHLORIDE TAB [Suspect]
     Dosage: 0.5 MG/DAY
     Route: 030

REACTIONS (2)
  - MYASTHENIA GRAVIS [None]
  - RESPIRATORY FAILURE [None]
